FAERS Safety Report 4397159-1 (Version None)
Quarter: 2004Q3

REPORT INFORMATION
  Report Type: 
  Country: None (occurrence: None)
  Receive Date: 20040714
  Receipt Date: 20040708
  Transmission Date: 20050211
  Serious: Yes (Hospitalization)
  Sender: FDA-Public Use
  Company Number: DE-ROCHE-373714

PATIENT
  Age: 55 Year
  Sex: Male
  Weight: 72 kg

DRUGS (11)
  1. MYCOPHENOLATE MOFETIL [Suspect]
     Route: 048
     Dates: start: 20040602
  2. MYCOPHENOLATE MOFETIL [Suspect]
     Route: 048
     Dates: start: 20040605
  3. MYCOPHENOLATE MOFETIL [Suspect]
     Route: 048
     Dates: start: 20040615
  4. DACLIZUMAB [Suspect]
     Route: 042
     Dates: start: 20040602, end: 20040602
  5. DACLIZUMAB [Suspect]
     Dosage: DUE TO BE STOPPED ON 28 JULY 2004
     Route: 042
  6. TACROLIMUS [Suspect]
     Route: 048
     Dates: start: 20040602
  7. URBASON [Suspect]
     Route: 042
     Dates: start: 20040602
  8. URBASON [Suspect]
     Route: 042
     Dates: start: 20040603
  9. URBASON [Suspect]
     Route: 042
     Dates: start: 20040604
  10. URBASON [Suspect]
     Dosage: 12 MG AND 8 MG
     Route: 048
     Dates: start: 20040605
  11. URBASON [Suspect]
     Route: 048
     Dates: start: 20040610

REACTIONS (1)
  - LYMPHOCELE [None]
